FAERS Safety Report 24267908 (Version 2)
Quarter: 2024Q3

REPORT INFORMATION
  Report Type: Report from Study
  Country: US (occurrence: US)
  Receive Date: 20240830
  Receipt Date: 20240918
  Transmission Date: 20241016
  Serious: No
  Sender: AIMMUNE
  Company Number: US-ZENPEP LLC-2024AIMT01294

PATIENT

DRUGS (2)
  1. ZENPEP [Suspect]
     Active Substance: PANCRELIPASE AMYLASE\PANCRELIPASE LIPASE\PANCRELIPASE PROTEASE
     Indication: Pancreatic failure
     Dosage: 40000 UPS 100CT CAPSULES
     Route: 048
     Dates: start: 202205
  2. ZENPEP [Suspect]
     Active Substance: PANCRELIPASE AMYLASE\PANCRELIPASE LIPASE\PANCRELIPASE PROTEASE
     Dosage: 40000 UPS 100CT CAPSULES, ONCE, LAST DOSE PRIOR EVENT
     Route: 048

REACTIONS (1)
  - No adverse event [Not Recovered/Not Resolved]

NARRATIVE: CASE EVENT DATE: 20190101
